FAERS Safety Report 5616194-6 (Version None)
Quarter: 2008Q1

REPORT INFORMATION
  Report Type: 
  Country: None (occurrence: None)
  Receive Date: 20080206
  Receipt Date: 20071109
  Transmission Date: 20080703
  Serious: Yes (Hospitalization)
  Sender: FDA-Public Use
  Company Number: CA-MERCK-0711CAN00031

PATIENT
  Age: 40 Month
  Sex: Male
  Weight: 18 kg

DRUGS (4)
  1. SINGULAIR [Suspect]
     Indication: ASTHMA
     Route: 048
     Dates: start: 20070907
  2. FLUTICASONE PROPIONATE [Concomitant]
     Dates: start: 20051124, end: 20070927
  3. FLUTICASONE PROPIONATE [Concomitant]
     Dates: start: 20070928, end: 20071005
  4. ALBUTEROL [Concomitant]
     Indication: ASTHMA
     Route: 065
     Dates: start: 20070827

REACTIONS (1)
  - ASTHMA [None]
